FAERS Safety Report 8985859 (Version 1)
Quarter: 2012Q4

REPORT INFORMATION
  Report Type: Report from Study
  Country: DE (occurrence: DE)
  Receive Date: 20121226
  Receipt Date: 20121226
  Transmission Date: 20130627
  Serious: Yes (Other)
  Sender: FDA-Public Use
  Company Number: DE-ABBOTT-12P-062-1026186-00

PATIENT
  Age: 75 Year
  Sex: Male

DRUGS (1)
  1. TRENANTONE [Suspect]
     Indication: PROSTATE CANCER
     Route: 058
     Dates: start: 20120719

REACTIONS (1)
  - Lung neoplasm malignant [Unknown]
